FAERS Safety Report 7552999-2 (Version None)
Quarter: 2011Q2

REPORT INFORMATION
  Report Type: 
  Country: None (occurrence: None)
  Receive Date: 20110616
  Receipt Date: 20110614
  Transmission Date: 20111010
  Serious: Yes (Life-Threatening, Hospitalization)
  Sender: FDA-Public Use
  Company Number: GB-ALLERGAN-1108020US

PATIENT
  Age: 56 Year
  Sex: Female

DRUGS (3)
  1. IBUPROFEN [Concomitant]
     Indication: BACK PAIN
     Dosage: 400 MG, UNK
     Route: 048
  2. BOTOX [Suspect]
     Indication: PRODUCT USED FOR UNKNOWN INDICATION
     Dosage: 200 UNITS, SINGLE
     Dates: start: 20110125, end: 20110125
  3. ACETAMINOPHEN [Concomitant]
     Indication: BACK PAIN
     Dosage: 1000 MG, UNK
     Route: 048

REACTIONS (3)
  - SWELLING FACE [None]
  - ATRIAL FIBRILLATION [None]
  - HOT FLUSH [None]
